FAERS Safety Report 10360615 (Version 1)
Quarter: 2014Q3

REPORT INFORMATION
  Report Type: Spontaneous
  Country: FR (occurrence: FR)
  Receive Date: 20140804
  Receipt Date: 20140804
  Transmission Date: 20150326
  Serious: Yes (Other)
  Sender: FDA-Public Use
  Company Number: FR-TEVA-497362ISR

PATIENT
  Age: 72 Year
  Sex: Female

DRUGS (1)
  1. KETOPROFENE TEVA 2.5 PERCENT [Suspect]
     Active Substance: KETOPROFEN
     Indication: VASCULAR PAIN
     Dosage: 1 DOSAGE FORMS DAILY;
     Route: 003
     Dates: start: 20140630, end: 20140702

REACTIONS (4)
  - Thermal burn [Recovered/Resolved]
  - Pruritus [Not Recovered/Not Resolved]
  - Dermatitis bullous [Recovering/Resolving]
  - Pain [Unknown]

NARRATIVE: CASE EVENT DATE: 201407
